FAERS Safety Report 23944026 (Version 1)
Quarter: 2024Q2

REPORT INFORMATION
  Report Type: Spontaneous
  Country: DE (occurrence: DE)
  Receive Date: 20240606
  Receipt Date: 20240606
  Transmission Date: 20240715
  Serious: Yes (Hospitalization)
  Sender: FDA-Public Use
  Company Number: DE-ROCHE-3103752

PATIENT
  Age: 55 Year
  Sex: Female
  Weight: 68.7 kg

DRUGS (17)
  1. CARBOPLATIN [Suspect]
     Active Substance: CARBOPLATIN
     Indication: Non-small cell lung cancer metastatic
     Dosage: 750.000MG TIW
     Route: 042
     Dates: start: 20210316
  2. PEMETREXED [Suspect]
     Active Substance: PEMETREXED
     Indication: Non-small cell lung cancer metastatic
     Dosage: ON 10/MAY/2022, THE PATIENT RECEIVED THE MOST RECENT DOSE OF PEMETREXED (850 MG) PRIOR TO AE/SAE.
     Route: 042
     Dates: start: 20210316
  3. ATEZOLIZUMAB [Concomitant]
     Active Substance: ATEZOLIZUMAB
     Indication: Non-small cell lung cancer metastatic
     Dosage: ON 10/MAY/2022, THE PATIENT RECEIVED THE MOST RECENT DOSE OF BLINDED ATEZOLIZUMAB PRIOR TO AE/SAE.
     Route: 065
     Dates: start: 20210316
  4. BISOPROLOL [Concomitant]
     Active Substance: BISOPROLOL\BISOPROLOL FUMARATE
     Indication: Sinus tachycardia
     Dosage: 2.500MG QD
     Route: 065
     Dates: start: 20210414
  5. ENOXAPARIN SODIUM [Concomitant]
     Active Substance: ENOXAPARIN SODIUM
     Indication: Thrombosis prophylaxis
     Dosage: 4.000MG QD
     Route: 065
     Dates: start: 20220521
  6. CLINDAMYCIN [Concomitant]
     Active Substance: CLINDAMYCIN
     Indication: Erysipelas
     Dosage: 600.000MG
     Route: 065
     Dates: start: 20220517, end: 20220524
  7. DEXAMETHASONE [Concomitant]
     Active Substance: DEXAMETHASONE
     Indication: Radiation necrosis
     Dosage: 2.000MG QD
     Route: 065
     Dates: start: 20220509, end: 20220511
  8. DEXAMETHASONE [Concomitant]
     Active Substance: DEXAMETHASONE
     Dosage: 8.000MG
     Route: 065
     Dates: start: 20210316, end: 20220518
  9. FOLIC ACID [Concomitant]
     Active Substance: FOLIC ACID
     Indication: Prophylaxis
     Dosage: 0.400MG QD
     Route: 065
     Dates: start: 20210309, end: 20220711
  10. GRANISETRON [Concomitant]
     Active Substance: GRANISETRON
     Indication: Prophylaxis
     Dosage: 1.000MG TIW
     Route: 065
     Dates: start: 20210629, end: 20220510
  11. METFORMIN [Concomitant]
     Active Substance: METFORMIN HYDROCHLORIDE
     Indication: Erysipelas
     Dosage: 500.000MG
     Route: 065
     Dates: start: 20220227
  12. METFORMIN [Concomitant]
     Active Substance: METFORMIN HYDROCHLORIDE
     Indication: Type 2 diabetes mellitus
     Dosage: 600.000MG
     Route: 065
     Dates: start: 20220517
  13. OCTENIDINE DIHYDROCHLORIDE [Concomitant]
     Indication: Erysipelas
     Dosage: 100.000ML
     Route: 065
     Dates: start: 20220517
  14. PEMBROLIZUMAB [Concomitant]
     Active Substance: PEMBROLIZUMAB
     Indication: Non-small cell lung cancer metastatic
     Dosage: ON 10/MAY/2022, THE PATIENT RECEIVED THE MOST RECENT DOSE OF BLINDED PEMBROLIZUMAB PRIOR TO AE/SAE.
     Route: 065
     Dates: start: 20210316
  15. Tannacomp [Concomitant]
     Indication: Diarrhoea
     Dosage: 550.000MG
     Route: 065
     Dates: start: 20210418
  16. TIRAGOLUMAB [Concomitant]
     Active Substance: TIRAGOLUMAB
     Indication: Non-small cell lung cancer metastatic
     Dosage: ON 10/MAY/2022, THE PATIENT RECEIVED THE MOST RECENT DOSE OF BLINDED TIRAGOLUMAB PRIOR TO AE/SAE.
     Route: 065
     Dates: start: 20210316
  17. VITAMIN B12 [Concomitant]
     Active Substance: CYANOCOBALAMIN
     Indication: Product used for unknown indication
     Dosage: 1.000MG
     Route: 065
     Dates: start: 20210309, end: 20220711

REACTIONS (1)
  - Seizure [Recovered/Resolved]

NARRATIVE: CASE EVENT DATE: 20220522
